FAERS Safety Report 16989137 (Version 1)
Quarter: 2019Q4

REPORT INFORMATION
  Report Type: Report from Study
  Country: GB (occurrence: GB)
  Receive Date: 20191104
  Receipt Date: 20191104
  Transmission Date: 20200122
  Serious: Yes (Other)
  Sender: FDA-Public Use
  Company Number: GB-EMD SERONO-9125463

PATIENT
  Sex: Female
  Weight: 81 kg

DRUGS (3)
  1. MAVENCLAD [Suspect]
     Active Substance: CLADRIBINE
     Indication: RELAPSING-REMITTING MULTIPLE SCLEROSIS
     Dosage: FIRST YEAR FIRST WEEK THERAPY: TWO TABLETS ON DAYS 1 TO 3 THEN ONE TABLET ON DAYS 4 AND 5.
     Route: 048
     Dates: start: 20180524
  2. MAVENCLAD [Suspect]
     Active Substance: CLADRIBINE
     Dosage: FIRST YEAR SECOND WEEK THERAPY: TWO TABLETS ON DAYS 1 TO 3 THEN ONE TABLET ON DAYS 4 AND 5.
     Route: 048
     Dates: start: 20180628
  3. MAVENCLAD [Suspect]
     Active Substance: CLADRIBINE
     Dosage: SECOND YEAR FIRST WEEK THERAPY: TWO TABLETS ON DAYS 1 TO 3 THEN ONE TABLET ON DAYS 4 AND 5.
     Route: 048
     Dates: start: 201909

REACTIONS (1)
  - Lower respiratory tract infection [Unknown]
